FAERS Safety Report 13771469 (Version 1)
Quarter: 2017Q3

REPORT INFORMATION
  Report Type: Spontaneous
  Country: RU (occurrence: RU)
  Receive Date: 20170720
  Receipt Date: 20170720
  Transmission Date: 20171127
  Serious: Yes (Other)
  Sender: FDA-Public Use
  Company Number: RU-ASTRAZENECA-2017SE73471

PATIENT
  Age: 71 Year
  Sex: Female

DRUGS (2)
  1. XARELTO [Concomitant]
     Active Substance: RIVAROXABAN
  2. SYMBICORT [Suspect]
     Active Substance: BUDESONIDE\FORMOTEROL FUMARATE DIHYDRATE
     Indication: ASTHMA
     Dosage: 160/4,5 MCG, 120 DOSES, 2 INHALATIONS, BID
     Route: 055

REACTIONS (2)
  - Wrong technique in product usage process [Unknown]
  - Dyspnoea [Not Recovered/Not Resolved]
